FAERS Safety Report 4751073-8 (Version None)
Quarter: 2005Q3

REPORT INFORMATION
  Report Type: 
  Country: None (occurrence: None)
  Receive Date: 20050824
  Receipt Date: 20040217
  Transmission Date: 20060218
  Serious: Yes (Death, Other)
  Sender: FDA-Public Use
  Company Number: PHEH2004US02049

PATIENT
  Age: 52 Year
  Sex: Male

DRUGS (10)
  1. OXYCONTIN [Concomitant]
     Dosage: 20 MG, BID
  2. ZOMETA [Suspect]
     Indication: MULTIPLE MYELOMA
     Dosage: 4 MG, QMO
     Dates: start: 20030110, end: 20040108
  3. VINCRISTINE [Concomitant]
  4. CYTOXAN [Concomitant]
  5. MELPHALAN [Concomitant]
     Dosage: 300 MG, UNK
     Route: 042
     Dates: start: 20031213
  6. PREDNISONE [Concomitant]
     Dates: start: 19990101
  7. DEXAMETHASONE [Concomitant]
     Dates: start: 19990101
  8. THALIDOMIDE [Concomitant]
  9. AREDIA [Suspect]
     Indication: MULTIPLE MYELOMA
     Dosage: 90 MG, QMO
     Dates: start: 19990108, end: 20030107
  10. BACTRIM DS [Concomitant]
     Indication: PROPHYLAXIS
     Dosage: 1 TABLET/MON-WED-FRI
     Dates: start: 20040101

REACTIONS (22)
  - ACTIVITIES OF DAILY LIVING IMPAIRED [None]
  - BIOPSY [None]
  - BONE LESION [None]
  - DEATH [None]
  - DEFORMITY [None]
  - GENERAL NUTRITION DISORDER [None]
  - HYPERBARIC OXYGEN THERAPY [None]
  - IMPAIRED HEALING [None]
  - INFECTION [None]
  - JAW OPERATION [None]
  - OEDEMA MUCOSAL [None]
  - ORAL MUCOSAL DISCOLOURATION [None]
  - OSTEONECROSIS [None]
  - PAIN IN JAW [None]
  - PATHOLOGICAL FRACTURE [None]
  - RADIATION INJURY [None]
  - SOFT TISSUE DISORDER [None]
  - SWELLING [None]
  - TENDERNESS [None]
  - TOOTH EXTRACTION [None]
  - TOOTH LOSS [None]
  - WOUND DRAINAGE [None]
